FAERS Safety Report 8572875-6 (Version None)
Quarter: 2012Q3

REPORT INFORMATION
  Report Type: 
  Country: None (occurrence: None)
  Receive Date: 20120806
  Receipt Date: 20120725
  Transmission Date: 20120928
  Serious: Yes (Other)
  Sender: FDA-Public Use
  Company Number: US-009507513-1207USA010316

PATIENT

DRUGS (4)
  1. FOSAMAX [Suspect]
     Dosage: UNK
     Route: 048
     Dates: start: 19990101, end: 20080201
  2. FOSAMAX [Suspect]
     Dosage: UNK
     Route: 048
     Dates: start: 20090101, end: 20090201
  3. FOSAMAX [Suspect]
     Dosage: UNK
     Route: 048
     Dates: start: 20080201, end: 20090101
  4. FOSAMAX [Suspect]
     Dosage: UNK
     Route: 048
     Dates: start: 20090201, end: 20110301

REACTIONS (2)
  - FEMUR FRACTURE [None]
  - LOW TURNOVER OSTEOPATHY [None]
